FAERS Safety Report 18696306 (Version 1)
Quarter: 2021Q1

REPORT INFORMATION
  Report Type: Spontaneous
  Country: NL (occurrence: NL)
  Receive Date: 20210104
  Receipt Date: 20210104
  Transmission Date: 20210419
  Serious: Yes (Other)
  Sender: FDA-Public Use
  Company Number: NL-JAZZ-2020-NL-017888

PATIENT
  Age: 76 Year
  Sex: Male
  Weight: 99 kg

DRUGS (3)
  1. ZEPZELCA [Suspect]
     Active Substance: LURBINECTEDIN
     Indication: SMALL CELL LUNG CANCER
     Dosage: 6.4 MILLIGRAM
     Route: 042
     Dates: start: 20200901, end: 20200922
  2. DEXAMETHASONE. [Concomitant]
     Active Substance: DEXAMETHASONE
     Indication: PRODUCT USED FOR UNKNOWN INDICATION
     Dosage: UNK
     Dates: start: 20200922, end: 20200922
  3. GRANISETRONE [Concomitant]
     Indication: PRODUCT USED FOR UNKNOWN INDICATION
     Dosage: UNK
     Dates: start: 20200901, end: 20200901

REACTIONS (1)
  - Phlebitis [Unknown]
